FAERS Safety Report 16477224 (Version 2)
Quarter: 2019Q3

REPORT INFORMATION
  Report Type: Spontaneous
  Country: DE (occurrence: DE)
  Receive Date: 20190626
  Receipt Date: 20190708
  Transmission Date: 20191004
  Serious: Yes (Life-Threatening, Hospitalization, Other)
  Sender: FDA-Public Use
  Company Number: DE-TEVA-2019-DE-1067474

PATIENT
  Age: 50 Year
  Sex: Male
  Weight: 74 kg

DRUGS (16)
  1. AMOXIDURA PLUS 875/125 MG FILM-COATED TABLETS [Suspect]
     Active Substance: AMOXICILLIN\CLAVULANATE POTASSIUM
     Indication: BRONCHITIS
     Dosage: AMOXIDURA PLUS 875/125 MG FILM-COATED TABLETS
     Dates: start: 20141229
  2. PARACODIN [Concomitant]
     Dates: start: 20150113
  3. ACC AKUT 600 MG [Concomitant]
  4. MCP [Concomitant]
     Active Substance: METOCLOPRAMIDE HYDROCHLORIDE
     Dates: start: 20140102
  5. CIPROFLOXACIN. [Suspect]
     Active Substance: CIPROFLOXACIN
     Route: 048
     Dates: start: 20140930
  6. METRONIDAZOL 400 [Concomitant]
     Dosage: 1-0-1, 400MG PER 12 HRS
     Route: 048
     Dates: start: 20140930
  7. CAPVAL 25 MG [Concomitant]
     Dates: start: 20141229
  8. PERENTEROL [Concomitant]
     Active Substance: SACCHAROMYCES CEREVISIAE
     Indication: DIARRHOEA
     Dates: start: 201410
  9. NOVOPULMON [Concomitant]
     Active Substance: BUDESONIDE
     Dates: start: 20150105
  10. MOXIFLOXACIN-ACTAVIS 400MG [Suspect]
     Active Substance: MOXIFLOXACIN HYDROCHLORIDE
     Indication: BRONCHITIS
     Dosage: 1-0-0
     Dates: start: 20150113
  11. OMEPRAZOL [Concomitant]
     Active Substance: OMEPRAZOLE
     Dosage: FOR 30 YEARS, LOW DOSES
  12. PROSPAN HUSTENSAFT [Concomitant]
     Dates: start: 20141223
  13. MACROGOL [Concomitant]
     Active Substance: POLYETHYLENE GLYCOLS
     Dates: start: 20141001
  14. BUSCOPAN [Concomitant]
     Active Substance: BUTYLSCOPOLAMINE BROMIDE
     Dates: start: 20141002
  15. SINUPRET EXTRACT [Concomitant]
     Dosage: 3X1
  16. NOVAMINSULFON 500 MG [Concomitant]
     Active Substance: METAMIZOLE
     Dates: start: 20140930

REACTIONS (24)
  - Decreased appetite [Recovered/Resolved]
  - Pruritus generalised [Recovered/Resolved]
  - Parkinsonism [Not Recovered/Not Resolved]
  - Disturbance in attention [Not Recovered/Not Resolved]
  - Weight decreased [Recovered/Resolved]
  - Exercise tolerance decreased [Not Recovered/Not Resolved]
  - Impaired work ability [Unknown]
  - Faeces discoloured [Not Recovered/Not Resolved]
  - Dizziness [Not Recovered/Not Resolved]
  - Nausea [Recovered/Resolved]
  - Eosinophilia [Not Recovered/Not Resolved]
  - Weight bearing difficulty [Not Recovered/Not Resolved]
  - Insomnia [Recovered/Resolved]
  - Parkinson^s disease [Unknown]
  - Fatigue [Not Recovered/Not Resolved]
  - Gait disturbance [Unknown]
  - Ocular icterus [Recovered/Resolved]
  - Chromaturia [Recovered/Resolved]
  - Jaundice [Recovered/Resolved]
  - Constipation [Recovered/Resolved]
  - Impaired quality of life [Not Recovered/Not Resolved]
  - Asthenia [Not Recovered/Not Resolved]
  - Hepatitis [Recovered/Resolved]
  - Decreased immune responsiveness [Not Recovered/Not Resolved]

NARRATIVE: CASE EVENT DATE: 2015
